FAERS Safety Report 5627269-X (Version None)
Quarter: 2008Q1

REPORT INFORMATION
  Report Type: 
  Country: None (occurrence: None)
  Receive Date: 20080215
  Receipt Date: 20080128
  Transmission Date: 20080703
  Serious: Yes (Disabling)
  Sender: FDA-Public Use
  Company Number: US-BAYER-200610092BBE

PATIENT
  Sex: Male

DRUGS (9)
  1. HYPRHO-D [Suspect]
  2. ENGERIX-B [Suspect]
     Indication: IMMUNISATION
     Dates: start: 19960209, end: 19960209
  3. ENGERIX-B [Suspect]
     Dates: start: 19961111, end: 19961111
  4. ENGERIX-B [Suspect]
     Dates: start: 19980914, end: 19980914
  5. DTPH/TETRAMUNE [Suspect]
     Indication: IMMUNISATION
     Dates: start: 19960325, end: 19960325
  6. DTPH/TETRAMUNE [Suspect]
     Dates: start: 19960610, end: 19960610
  7. DTPH/TETRAMUNE [Suspect]
     Dates: start: 19960703, end: 19960703
  8. HAEMOPHILUS/HIB TITER [Suspect]
     Indication: IMMUNISATION
     Dates: start: 19970701, end: 19970701
  9. DTAP/ACEL-IMMUNE [Suspect]
     Indication: IMMUNISATION
     Dates: start: 19970701, end: 19970701

REACTIONS (8)
  - DEVELOPMENTAL DELAY [None]
  - GASTROINTESTINAL DISORDER [None]
  - IMMUNE SYSTEM DISORDER [None]
  - LEARNING DISABILITY [None]
  - METAL POISONING [None]
  - NERVE ROOT INJURY [None]
  - NERVOUS SYSTEM DISORDER [None]
  - PSYCHOMOTOR SKILLS IMPAIRED [None]
